FAERS Safety Report 12615380 (Version 3)
Quarter: 2016Q3

REPORT INFORMATION
  Report Type: Spontaneous
  Country: DE (occurrence: DE)
  Receive Date: 20160802
  Receipt Date: 20160917
  Transmission Date: 20161109
  Serious: Yes (Hospitalization, Other)
  Sender: FDA-Public Use
  Company Number: DE-AMGEN-DEUSP2016097428

PATIENT
  Age: 72 Year
  Sex: Male
  Weight: 65 kg

DRUGS (8)
  1. PARACETAMOL [Concomitant]
     Active Substance: ACETAMINOPHEN
     Dosage: 500 MG, TID
     Route: 042
     Dates: start: 20160505, end: 20160510
  2. BACLOFEN. [Concomitant]
     Active Substance: BACLOFEN
     Dosage: 25 MG, UNK
     Dates: start: 20160518, end: 20160613
  3. METAMIZOL [Concomitant]
     Active Substance: METAMIZOLE SODIUM
     Dosage: UNK, 30GTT
     Dates: start: 20160426, end: 20160518
  4. OXYGESIC [Concomitant]
     Active Substance: OXYCODONE
     Dosage: 5 MG, UNK
  5. IBUPROFEN. [Concomitant]
     Active Substance: IBUPROFEN
     Dosage: 800 MG, TID
     Dates: start: 20160518, end: 20160610
  6. PROLIA [Suspect]
     Active Substance: DENOSUMAB
     Indication: OSTEOPOROSIS
     Dosage: 60 MG, Q6MO
     Route: 058
     Dates: start: 20160502
  7. OXYCODON [Concomitant]
     Active Substance: OXYCODONE
     Dosage: 10 MG, UNK
     Dates: start: 20160507, end: 20160616
  8. VALORON [Concomitant]
     Active Substance: TILIDINE HYDROCHLORIDE
     Dosage: 150 MG, BID
     Dates: start: 20160426, end: 20160610

REACTIONS (13)
  - Rib fracture [Recovered/Resolved]
  - Lumbar vertebral fracture [Not Recovered/Not Resolved]
  - Feeding disorder [Recovered/Resolved]
  - Muscle spasms [Recovered/Resolved]
  - Peripheral swelling [Recovered/Resolved]
  - Psychological trauma [Unknown]
  - Thoracic vertebral fracture [Not Recovered/Not Resolved]
  - Plasma cell myeloma [Not Recovered/Not Resolved]
  - Seizure [Recovered/Resolved]
  - Weight decreased [Unknown]
  - Activities of daily living impaired [Unknown]
  - Nephropathy [Recovered/Resolved]
  - General physical condition abnormal [Unknown]

NARRATIVE: CASE EVENT DATE: 20160504
